FAERS Safety Report 10216756 (Version 1)
Quarter: 2014Q1

REPORT INFORMATION
  Report Type: Spontaneous
  Country: US (occurrence: None)
  Receive Date: 20140306
  Receipt Date: 20140306
  Transmission Date: 20141002
  Serious: Yes (Other)
  Sender: FDA-Public Use
  Company Number: 163-21880-13045117

PATIENT
  Age: 67 Year
  Sex: Male

DRUGS (8)
  1. REVLIMID (LENALIDOMIDE) (15 MILLIGRAM, CAPSULES) [Suspect]
     Route: 048
     Dates: start: 201203
  2. ANTACID MEDICINE  (ANTACIDS) [Concomitant]
  3. ASPIRIN (ACETYLSALICYLIC ACID) [Concomitant]
  4. LEVOTHYROXINE SODIUM (LEVOTHYROXINE SODIUM) [Concomitant]
  5. LISINOPRIL (LISINOPRIL) [Concomitant]
  6. NOVOLIN R (INSULIN HUMAN ) [Concomitant]
  7. TAMSULOSIN HCL (TAMSULOSIN HYDROCHLORIDE) [Concomitant]
  8. LANTUS SOLOSTAR (INSULIN GLARGINE) [Concomitant]

REACTIONS (1)
  - Full blood count decreased [None]
